FAERS Safety Report 24346238 (Version 1)
Quarter: 2024Q3

REPORT INFORMATION
  Report Type: Spontaneous
  Country: US (occurrence: US)
  Receive Date: 20240921
  Receipt Date: 20240921
  Transmission Date: 20241016
  Serious: No
  Sender: ROCHE
  Company Number: US-ROCHE-10000084953

PATIENT
  Sex: Female
  Weight: 70.3 kg

DRUGS (2)
  1. VABYSMO [Suspect]
     Active Substance: FARICIMAB\FARICIMAB-SVOA
     Indication: Neovascular age-related macular degeneration
     Route: 050
  2. EYLEA [Concomitant]
     Active Substance: AFLIBERCEPT

REACTIONS (1)
  - Dyspnoea [Not Recovered/Not Resolved]
